FAERS Safety Report 20808657 (Version 1)
Quarter: 2022Q2

REPORT INFORMATION
  Report Type: Spontaneous
  Country: US (occurrence: US)
  Receive Date: 20220510
  Receipt Date: 20220510
  Transmission Date: 20220721
  Serious: Yes (Hospitalization, Other)
  Sender: FDA-Public Use
  Company Number: US-NOVOPROD-915888

PATIENT
  Sex: Female

DRUGS (2)
  1. OZEMPIC [Suspect]
     Active Substance: SEMAGLUTIDE
     Indication: Type 2 diabetes mellitus
     Dosage: UNK
     Route: 058
  2. JARDIANCE [Suspect]
     Active Substance: EMPAGLIFLOZIN
     Indication: Type 2 diabetes mellitus
     Dosage: 25 MG, QD
     Route: 065
     Dates: start: 20211209

REACTIONS (8)
  - COVID-19 pneumonia [Recovered/Resolved]
  - Osteomyelitis [Unknown]
  - Hypotension [Unknown]
  - Bone disorder [Unknown]
  - Sinusitis [Unknown]
  - Dehydration [Unknown]
  - Fatigue [Unknown]
  - Vomiting [Recovered/Resolved]

NARRATIVE: CASE EVENT DATE: 20220101
